FAERS Safety Report 24088694 (Version 2)
Quarter: 2024Q3

REPORT INFORMATION
  Report Type: Spontaneous
  Country: US (occurrence: US)
  Receive Date: 20240715
  Receipt Date: 20240821
  Transmission Date: 20241017
  Serious: No
  Sender: ELI LILLY AND CO
  Company Number: US-ELI_LILLY_AND_COMPANY-US202407007194

PATIENT
  Age: 43 Year
  Sex: Male
  Weight: 126.98 kg

DRUGS (9)
  1. TALTZ [Suspect]
     Active Substance: IXEKIZUMAB
     Indication: Psoriasis
     Dosage: 80 MG, MONTHLY (1/M) (EVERY 28 DAYS)
     Route: 058
     Dates: start: 20230724
  2. ALCLOMETASONE [Concomitant]
     Active Substance: ALCLOMETASONE
     Indication: Psoriasis
     Dosage: UNK UNK, BID (PRN, APPLY TO AFFECTED AREAS TWICE DAILY ON THE FACE, EARS AND LOWER ABDOMEN)
     Route: 061
     Dates: start: 20210713
  3. CLOBETASOL [Concomitant]
     Active Substance: CLOBETASOL
     Indication: Psoriasis
     Dosage: UNK UNK, BID (PRN, APPLY TO PSORIASIS AREAS ON THE BODY TWICE DAILY AS NEEDED)
     Route: 061
     Dates: start: 20210713
  4. TRIAMCINOLONE ACETONIDE [Concomitant]
     Active Substance: TRIAMCINOLONE ACETONIDE
     Indication: Psoriasis
     Dosage: UNK UNK, BID (APPLY TO AFFECTED AREAS TWICE DAILY)
     Route: 061
     Dates: start: 20240815
  5. VTAMA [Concomitant]
     Active Substance: TAPINAROF
     Indication: Psoriasis
     Dosage: UNK UNK, BID (APPLY TO PSORIASIS AFFECTED AREA)
     Route: 061
  6. VITAMINS [Concomitant]
     Active Substance: VITAMINS
     Indication: Product used for unknown indication
     Dosage: 0.4 MG, OTHER (QD)
     Route: 048
  7. FARXIGA [Concomitant]
     Active Substance: DAPAGLIFLOZIN PROPANEDIOL
     Indication: Product used for unknown indication
     Dosage: 10 MG, DAILY
     Route: 048
  8. LISINOPRIL [Concomitant]
     Active Substance: LISINOPRIL
     Indication: Product used for unknown indication
     Dosage: 5 MG, DAILY
     Route: 048
  9. METFORMIN HYDROCHLORIDE [Concomitant]
     Active Substance: METFORMIN HYDROCHLORIDE
     Indication: Product used for unknown indication
     Dosage: 500 MG, DAILY
     Route: 048

REACTIONS (1)
  - Herpes zoster [Recovering/Resolving]

NARRATIVE: CASE EVENT DATE: 20240710
